FAERS Safety Report 9414187 (Version 1)
Quarter: 2013Q3

REPORT INFORMATION
  Report Type: Spontaneous
  Country: TR (occurrence: None)
  Receive Date: 20130710
  Receipt Date: 20130710
  Transmission Date: 20140515
  Serious: Yes (Hospitalization, Other)
  Sender: FDA-Public Use
  Company Number: 09-AUR-10290

PATIENT
  Age: 61 Year
  Sex: Female

DRUGS (1)
  1. CEFUROXIME [Suspect]
     Indication: PRODUCT USED FOR UNKNOWN INDICATION
     Route: 048

REACTIONS (11)
  - Vertigo [None]
  - Chest pain [None]
  - Electrocardiogram ST segment elevation [None]
  - Kounis syndrome [None]
  - Anaphylactic shock [None]
  - Electrocardiogram ST segment depression [None]
  - Confusional state [None]
  - Arteriosclerosis coronary artery [None]
  - Type 2 diabetes mellitus [None]
  - Low density lipoprotein increased [None]
  - Diastolic dysfunction [None]
